FAERS Safety Report 7350393-0 (Version None)
Quarter: 2011Q1

REPORT INFORMATION
  Report Type: 
  Country: None (occurrence: None)
  Receive Date: 20110314
  Receipt Date: 20110309
  Transmission Date: 20110831
  Serious: Yes (Other)
  Sender: FDA-Public Use
  Company Number: FR-BRISTOL-MYERS SQUIBB COMPANY-15602725

PATIENT
  Age: 73 Year
  Sex: Female

DRUGS (3)
  1. ZOMETA [Suspect]
     Indication: BREAST CANCER METASTATIC
     Route: 048
     Dates: start: 20061212, end: 20101130
  2. AVASTIN [Suspect]
     Indication: BREAST CANCER METASTATIC
     Dosage: AVASTIN  25 MG/ML
     Route: 042
     Dates: start: 20091020, end: 20101130
  3. TAXOL [Suspect]
     Indication: BREAST CANCER METASTATIC
     Route: 042
     Dates: start: 20091020

REACTIONS (1)
  - OSTEONECROSIS [None]
